FAERS Safety Report 16568663 (Version 1)
Quarter: 2019Q3

REPORT INFORMATION
  Report Type: Report from Study
  Country: BE (occurrence: BE)
  Receive Date: 20190713
  Receipt Date: 20190713
  Transmission Date: 20191004
  Serious: Yes (Other)
  Sender: FDA-Public Use
  Company Number: BE-ROCHE-2354608

PATIENT
  Age: 64 Year
  Sex: Male

DRUGS (7)
  1. ALTEPLASE. [Suspect]
     Active Substance: ALTEPLASE
     Dosage: DURING THE NEXT TWO HOURS
     Route: 041
  2. ALTEPLASE. [Suspect]
     Active Substance: ALTEPLASE
     Indication: ACUTE MYOCARDIAL INFARCTION
     Route: 040
  3. HEPARIN [Suspect]
     Active Substance: HEPARIN SODIUM
     Dosage: 1000 IU/HOUR
     Route: 042
  4. ALTEPLASE. [Suspect]
     Active Substance: ALTEPLASE
     Dosage: DURING ONE HOUR
     Route: 041
  5. HEPARIN [Suspect]
     Active Substance: HEPARIN SODIUM
     Indication: ACUTE MYOCARDIAL INFARCTION
     Route: 040
  6. ASPIRIN [ACETYLSALICYLIC ACID] [Suspect]
     Active Substance: ASPIRIN
     Indication: ACUTE MYOCARDIAL INFARCTION
     Route: 042
  7. ASPIRIN [ACETYLSALICYLIC ACID] [Suspect]
     Active Substance: ASPIRIN
     Dosage: 75-125 MG ORALLY EVERY OTHER DAY UNTIL ANGIOGRAPHY
     Route: 048

REACTIONS (3)
  - Diplopia [Recovering/Resolving]
  - Ataxia [Recovering/Resolving]
  - Cerebral haemorrhage [Recovering/Resolving]
